FAERS Safety Report 12948235 (Version 3)
Quarter: 2017Q1

REPORT INFORMATION
  Report Type: Report from Study
  Country: None (occurrence: US)
  Receive Date: 20161117
  Receipt Date: 20170114
  Transmission Date: 20170428
  Serious: Yes (Other)
  Sender: FDA-Public Use
  Company Number: US-ABBVIE-16K-163-1781644-00

PATIENT
  Sex: Female

DRUGS (1)
  1. HUMIRA [Suspect]
     Active Substance: ADALIMUMAB
     Indication: CROHN^S DISEASE
     Route: 058
     Dates: start: 201603, end: 20161108

REACTIONS (3)
  - Hernia [Unknown]
  - Fistula [Unknown]
  - Post procedural infection [Recovering/Resolving]

NARRATIVE: CASE EVENT DATE: 2016
